FAERS Safety Report 10170890 (Version 1)
Quarter: 2014Q2

REPORT INFORMATION
  Report Type: Spontaneous
  Country: GB (occurrence: GB)
  Receive Date: 20140514
  Receipt Date: 20140514
  Transmission Date: 20141212
  Serious: Yes (Life-Threatening)
  Sender: FDA-Public Use
  Company Number: GB-AMGEN INC.-GBRSP2014034853

PATIENT
  Age: 77 Year
  Sex: Female

DRUGS (9)
  1. ENBREL [Suspect]
     Indication: RHEUMATOID ARTHRITIS
     Dosage: 50 MG, UNK
     Route: 058
     Dates: start: 20131024, end: 20140304
  2. DIGOXIN [Concomitant]
     Dosage: 62.5 UG, UNK
     Route: 048
  3. CLOPIDOGREL [Concomitant]
     Dosage: 75 MG, UNK
     Route: 048
  4. RAMIPRIL [Concomitant]
     Dosage: 5 MG, UNK
  5. FERROUS SULPHATE                   /00023503/ [Concomitant]
     Dosage: 200 MG, UNK
     Route: 048
  6. ATORVASTATIN [Concomitant]
     Dosage: 80 MG, UNK
  7. AMLODIPINE [Concomitant]
     Dosage: 5 MG, UNK
     Route: 048
  8. PREDNISOLONE [Concomitant]
     Dosage: 5 MG, UNK
  9. ASPIRIN [Concomitant]
     Dosage: 75 MG, UNK
     Route: 048

REACTIONS (1)
  - Ejection fraction decreased [Recovering/Resolving]
